FAERS Safety Report 7915196 (Version 2)
Quarter: 2019Q4

REPORT INFORMATION
  Report Type: Spontaneous
  Country: JP (occurrence: JP)
  Receive Date: 20110426
  Receipt Date: 20191008
  Transmission Date: 20200122
  Serious: Yes (Other)
  Sender: FDA-Public Use
  Company Number: JP-JNJFOC-20110406583

PATIENT

DRUGS (1)
  1. REMICADE [Suspect]
     Active Substance: INFLIXIMAB
     Indication: PUSTULAR PSORIASIS
     Route: 042

REACTIONS (5)
  - Herpes zoster [Unknown]
  - Retroperitoneal abscess [Unknown]
  - Staphylococcus test [Unknown]
  - Intervertebral discitis [Unknown]
  - Spondylitis [Unknown]
